FAERS Safety Report 7690494-0 (Version None)
Quarter: 2011Q3

REPORT INFORMATION
  Report Type: 
  Country: None (occurrence: None)
  Receive Date: 20110812
  Receipt Date: 20110801
  Transmission Date: 20111222
  Serious: Yes (Hospitalization, Other)
  Sender: FDA-Public Use
  Company Number: 2009AL000587

PATIENT
  Age: 76 Year
  Sex: Male
  Weight: 111.1313 kg

DRUGS (6)
  1. METOCLOPRAMIDE [Concomitant]
  2. DIGOXIN [Suspect]
     Indication: CARDIAC FAILURE CONGESTIVE
     Dosage: 0.250 MG, QD, O
     Dates: start: 20061006, end: 20070128
  3. METOPROLOL [Concomitant]
  4. NITROGLYCERIN [Concomitant]
  5. LISINOPRIL [Concomitant]
  6. WARFARIN SODIUM [Concomitant]

REACTIONS (34)
  - FEAR [None]
  - BRAIN NATRIURETIC PEPTIDE INCREASED [None]
  - PAIN [None]
  - ACTIVITIES OF DAILY LIVING IMPAIRED [None]
  - ANHEDONIA [None]
  - ELECTROCARDIOGRAM T WAVE ABNORMAL [None]
  - CARDIOACTIVE DRUG LEVEL DECREASED [None]
  - SOCIAL PROBLEM [None]
  - SINUS BRADYCARDIA [None]
  - BLOOD GLUCOSE INCREASED [None]
  - LOBAR PNEUMONIA [None]
  - PULMONARY HYPERTENSION [None]
  - MULTIPLE INJURIES [None]
  - BRADYCARDIA [None]
  - DIZZINESS [None]
  - VENTRICULAR EXTRASYSTOLES [None]
  - BUNDLE BRANCH BLOCK RIGHT [None]
  - VISION BLURRED [None]
  - ATRIOVENTRICULAR BLOCK FIRST DEGREE [None]
  - CHEST PAIN [None]
  - NECK PAIN [None]
  - FATIGUE [None]
  - TOXICITY TO VARIOUS AGENTS [None]
  - HYPERHIDROSIS [None]
  - BLOOD UREA INCREASED [None]
  - WHITE BLOOD CELL COUNT INCREASED [None]
  - HYPOTENSION [None]
  - EMOTIONAL DISTRESS [None]
  - ANXIETY [None]
  - ECONOMIC PROBLEM [None]
  - FAMILY STRESS [None]
  - ATRIAL FLUTTER [None]
  - CARDIOMEGALY [None]
  - ECG SIGNS OF MYOCARDIAL ISCHAEMIA [None]
